FAERS Safety Report 12444190 (Version 3)
Quarter: 2018Q2

REPORT INFORMATION
  Report Type: Spontaneous
  Country: US (occurrence: US)
  Receive Date: 20160607
  Receipt Date: 20180515
  Transmission Date: 20180711
  Serious: No
  Sender: FDA-Public Use
  Company Number: US-SA-2016SA063379

PATIENT
  Age: 57 Year
  Sex: Male
  Weight: 96.16 kg

DRUGS (8)
  1. METFORMIN [Concomitant]
     Active Substance: METFORMIN HYDROCHLORIDE
     Indication: DIABETES MELLITUS
  2. VALSARTAN. [Concomitant]
     Active Substance: VALSARTAN
  3. TOUJEO [Suspect]
     Active Substance: INSULIN GLARGINE
     Indication: TYPE 2 DIABETES MELLITUS
     Dosage: DOSE:109 UNIT(S)
     Route: 065
     Dates: start: 20151124, end: 20160214
  4. SOLOSTAR [Concomitant]
     Active Substance: DEVICE
     Dates: start: 20151201, end: 20160219
  5. LEVEMIR [Concomitant]
     Active Substance: INSULIN DETEMIR
  6. HUMEX(CARBOCYSTEINE) [Concomitant]
     Active Substance: CARBOCYSTEINE
  7. AMITRIPTYLINE [Concomitant]
     Active Substance: AMITRIPTYLINE
  8. HUMALOG [Concomitant]
     Active Substance: INSULIN LISPRO
     Indication: DIABETES MELLITUS
     Dosage: 10 BREAKFAST, 14 LUNCH, 19 SUPPER

REACTIONS (5)
  - Vision blurred [Recovered/Resolved]
  - Chronic obstructive pulmonary disease [Recovered/Resolved]
  - Weight increased [Recovered/Resolved]
  - Abdominal distension [Recovered/Resolved]
  - Eye swelling [Recovered/Resolved]

NARRATIVE: CASE EVENT DATE: 20160110
